FAERS Safety Report 5711516-X (Version None)
Quarter: 2008Q2

REPORT INFORMATION
  Report Type: 
  Country: None (occurrence: None)
  Receive Date: 20080418
  Receipt Date: 20080418
  Transmission Date: 20081010
  Serious: Yes (Other)
  Sender: FDA-Public Use
  Company Number: None

PATIENT
  Age: 41 Year
  Sex: Male
  Weight: 70.3075 kg

DRUGS (1)
  1. ROZEREM [Suspect]
     Indication: INSOMNIA
     Dosage: BEFORE BED NIGHTLY PO
     Route: 048
     Dates: start: 20080301, end: 20080316

REACTIONS (6)
  - ARRHYTHMIA [None]
  - DYSPNOEA [None]
  - EXTRASYSTOLES [None]
  - FATIGUE [None]
  - INITIAL INSOMNIA [None]
  - MIDDLE INSOMNIA [None]
